FAERS Safety Report 15408168 (Version 2)
Quarter: 2018Q4

REPORT INFORMATION
  Report Type: Spontaneous
  Country: FR (occurrence: FR)
  Receive Date: 20180920
  Receipt Date: 20181012
  Transmission Date: 20190204
  Serious: Yes (Hospitalization, Disabling)
  Sender: FDA-Public Use
  Company Number: FR-JNJFOC-20180907467

PATIENT
  Age: 66 Year
  Sex: Male
  Weight: 65 kg

DRUGS (1)
  1. IMBRUVICA [Suspect]
     Active Substance: IBRUTINIB
     Indication: CHRONIC LYMPHOCYTIC LEUKAEMIA
     Route: 048

REACTIONS (5)
  - Lacrimation increased [Not Recovered/Not Resolved]
  - Skin irritation [Unknown]
  - Musculoskeletal chest pain [Not Recovered/Not Resolved]
  - Paronychia [Recovered/Resolved with Sequelae]
  - Onychoclasis [Recovered/Resolved with Sequelae]

NARRATIVE: CASE EVENT DATE: 201609
